FAERS Safety Report 10082291 (Version 1)
Quarter: 2014Q2

REPORT INFORMATION
  Report Type: Spontaneous
  Country: US (occurrence: None)
  Receive Date: 20140414
  Receipt Date: 20140414
  Transmission Date: 20141212
  Serious: No
  Sender: FDA-Public Use
  Company Number: None

PATIENT
  Age: 32 Year
  Sex: Female
  Weight: 64.86 kg

DRUGS (1)
  1. BRINTELLIX [Suspect]
     Indication: ANXIETY
     Route: 048
     Dates: start: 20140331, end: 20140412

REACTIONS (6)
  - Disturbance in attention [None]
  - Chest pain [None]
  - Heart rate increased [None]
  - Faeces discoloured [None]
  - Contusion [None]
  - Headache [None]
